FAERS Safety Report 9633549 (Version 2)
Quarter: 2013Q4

REPORT INFORMATION
  Report Type: Report from Study
  Country: US (occurrence: US)
  Receive Date: 20131021
  Receipt Date: 20131213
  Transmission Date: 20140711
  Serious: No
  Sender: FDA-Public Use
  Company Number: PHEH2013US021424

PATIENT
  Sex: Female

DRUGS (15)
  1. TASIGNA [Suspect]
     Indication: CHRONIC MYELOID LEUKAEMIA
     Dosage: 400 MG, BID
     Route: 048
     Dates: start: 201306
  2. COZAAR [Concomitant]
  3. ASTEPRO [Concomitant]
  4. LIPITOR [Concomitant]
  5. SYNTHROID [Concomitant]
  6. ASACOL [Concomitant]
  7. ASA [Concomitant]
  8. ADVAIR [Concomitant]
  9. EPLERENONE [Concomitant]
  10. NEXUM [Concomitant]
  11. ALBUTEROL [Concomitant]
  12. SPIRIVA [Concomitant]
  13. OMEGA 3-6-9 [Concomitant]
  14. GLUCOSAMINE CHONDROITIN [Concomitant]
  15. CARDIZEM [Concomitant]

REACTIONS (4)
  - Dyspnoea [Unknown]
  - Fatigue [Unknown]
  - Hot flush [Unknown]
  - Asthenia [Unknown]
